FAERS Safety Report 25779244 (Version 1)
Quarter: 2025Q3

REPORT INFORMATION
  Report Type: Spontaneous
  Country: EU (occurrence: EU)
  Receive Date: 20250909
  Receipt Date: 20250909
  Transmission Date: 20251020
  Serious: Yes (Hospitalization, Other)
  Sender: RISING PHARMACEUTICALS
  Company Number: EU-RISINGPHARMA-IT-2025RISLIT00425

PATIENT
  Age: 7 Year
  Sex: Female

DRUGS (2)
  1. IBUPROFEN [Suspect]
     Active Substance: IBUPROFEN
     Indication: Product used for unknown indication
     Route: 065
  2. ACETAMINOPHEN [Concomitant]
     Active Substance: ACETAMINOPHEN
     Indication: Product used for unknown indication
     Route: 065

REACTIONS (9)
  - Haemolysis [Recovered/Resolved]
  - Renal tubular necrosis [Recovered/Resolved]
  - Acute kidney injury [Recovered/Resolved]
  - Methaemoglobinaemia [Recovered/Resolved]
  - Glucose-6-phosphate dehydrogenase deficiency [Recovered/Resolved]
  - Norovirus infection [Recovered/Resolved]
  - Hypokalaemia [Recovered/Resolved]
  - Hypouricaemia [Recovered/Resolved]
  - Hyperglycaemia [Recovered/Resolved]
